FAERS Safety Report 8044147-X (Version None)
Quarter: 2012Q1

REPORT INFORMATION
  Report Type: 
  Country: None (occurrence: None)
  Receive Date: 20120113
  Receipt Date: 20120110
  Transmission Date: 20120608
  Serious: Yes (Hospitalization)
  Sender: FDA-Public Use
  Company Number: PHEH2012US001003

PATIENT
  Sex: Female

DRUGS (8)
  1. COMBIVIR [Concomitant]
     Dosage: 300 MG, BID
  2. EXJADE [Suspect]
     Indication: SICKLE CELL ANAEMIA
     Dosage: 1000 MG, DAILY
     Route: 048
     Dates: start: 20060907
  3. EXJADE [Suspect]
     Indication: HAEMOSIDEROSIS
  4. DIDANOSINE [Concomitant]
     Indication: HIV INFECTION
     Dosage: 250 MG, DAILY
     Route: 048
  5. PENICILLIN [Concomitant]
     Indication: SICKLE CELL ANAEMIA
     Dosage: 200 MG, BID
     Route: 048
  6. SUSTIVA [Concomitant]
     Indication: HIV INFECTION
     Dosage: 400 MG, DAILY
     Route: 048
     Dates: start: 20080101
  7. COMBIVIR [Concomitant]
     Indication: HIV INFECTION
     Dosage: 150  MG, BID
     Route: 048
  8. SERTRALINE HYDROCHLORIDE [Concomitant]
     Indication: DEPRESSION
     Dosage: 50 MG, DAILY
     Route: 048

REACTIONS (3)
  - PAIN IN EXTREMITY [None]
  - SICKLE CELL ANAEMIA WITH CRISIS [None]
  - PERIPHERAL VASCULAR DISORDER [None]
